FAERS Safety Report 19218028 (Version 3)
Quarter: 2022Q4

REPORT INFORMATION
  Report Type: Spontaneous
  Country: CA (occurrence: CA)
  Receive Date: 20210502
  Receipt Date: 20221028
  Transmission Date: 20230113
  Serious: Yes (Hospitalization, Disabling, Other)
  Sender: FDA-Public Use
  Company Number: CA-BRISTOL-MYERS SQUIBB COMPANY-BMS-2021-039992

PATIENT
  Age: 40 Year
  Sex: Female
  Weight: 73 kg

DRUGS (85)
  1. ORENCIA [Suspect]
     Active Substance: ABATACEPT
     Indication: Rheumatoid arthritis
     Route: 042
  2. ORENCIA [Suspect]
     Active Substance: ABATACEPT
     Route: 065
  3. ORENCIA [Suspect]
     Active Substance: ABATACEPT
     Route: 065
  4. ORENCIA [Suspect]
     Active Substance: ABATACEPT
     Indication: Rheumatoid arthritis
     Route: 058
  5. XELJANZ [Concomitant]
     Active Substance: TOFACITINIB CITRATE
     Indication: Product used for unknown indication
     Dosage: 5 MILLIGRAM, BID
     Route: 065
  6. XELJANZ [Concomitant]
     Active Substance: TOFACITINIB CITRATE
     Dosage: 5 MILLIGRAM, BID
     Route: 048
  7. RITUXIMAB [Concomitant]
     Active Substance: RITUXIMAB
     Indication: Rheumatoid arthritis
     Dosage: 1000 MILLIGRAM, BID
     Route: 042
  8. RITUXIMAB [Concomitant]
     Active Substance: RITUXIMAB
     Dosage: 1000 MILLIGRAM, BID
     Route: 042
  9. RITUXIMAB [Concomitant]
     Active Substance: RITUXIMAB
     Dosage: 1000 MILLIGRAM, BID
     Route: 041
  10. RITUXIMAB [Concomitant]
     Active Substance: RITUXIMAB
     Route: 041
  11. RITUXIMAB [Concomitant]
     Active Substance: RITUXIMAB
     Route: 042
  12. TOFACITINIB CITRATE [Concomitant]
     Active Substance: TOFACITINIB CITRATE
     Indication: Product used for unknown indication
     Dosage: 5 MILLIGRAM, BID
     Route: 065
  13. TOFACITINIB CITRATE [Concomitant]
     Active Substance: TOFACITINIB CITRATE
     Dosage: 5 MILLIGRAM, BID
     Route: 065
  14. TOFACITINIB CITRATE [Concomitant]
     Active Substance: TOFACITINIB CITRATE
  15. SULFASALAZINE [Concomitant]
     Active Substance: SULFASALAZINE
     Indication: Rheumatoid arthritis
     Dosage: UNK
     Route: 048
  16. SULFASALAZINE [Concomitant]
     Active Substance: SULFASALAZINE
     Route: 058
  17. SIMPONI [Concomitant]
     Active Substance: GOLIMUMAB
     Indication: Rheumatoid arthritis
     Dosage: 50 MILLIGRAM, 3 YEARS
     Route: 058
  18. REMICADE [Concomitant]
     Active Substance: INFLIXIMAB
     Indication: Product used for unknown indication
     Dosage: 500 MILLIGRAM
     Route: 042
  19. REMICADE [Concomitant]
     Active Substance: INFLIXIMAB
     Dosage: POWDER FOR SOLUTION FOR INJECTION/INFUSION
     Route: 058
  20. PREDNISONE [Concomitant]
     Active Substance: PREDNISONE
     Indication: Rheumatoid arthritis
     Dosage: 20 MILLIGRAM EVERY 24 HOURS
     Route: 048
  21. PREDNISONE [Concomitant]
     Active Substance: PREDNISONE
     Dosage: 50 MILLIGRAM EVERY 24 HOURS
     Route: 048
  22. PREDNISONE [Concomitant]
     Active Substance: PREDNISONE
     Route: 065
  23. PREDNISONE [Concomitant]
     Active Substance: PREDNISONE
     Route: 065
  24. METHOTREXATE [Concomitant]
     Active Substance: METHOTREXATE
     Indication: Rheumatoid arthritis
     Dosage: UNK
     Route: 048
  25. METHOTREXATE [Concomitant]
     Active Substance: METHOTREXATE
     Dosage: UNK
     Route: 058
  26. METHOTREXATE [Concomitant]
     Active Substance: METHOTREXATE
     Dosage: UNK
     Route: 058
  27. LEFLUNOMIDE [Concomitant]
     Active Substance: LEFLUNOMIDE
     Indication: Product used for unknown indication
     Dosage: UNK
     Route: 065
  28. LEFLUNOMIDE [Concomitant]
     Active Substance: LEFLUNOMIDE
     Dosage: UNK
     Route: 048
  29. HYDROXYCHLOROQUINE SULFATE [Concomitant]
     Active Substance: HYDROXYCHLOROQUINE SULFATE
     Indication: Rheumatoid arthritis
     Dosage: UNK
     Route: 048
  30. HUMIRA [Concomitant]
     Active Substance: ADALIMUMAB
     Indication: Rheumatoid arthritis
     Dosage: 40 MILLIGRAM
     Route: 058
  31. GOLD [Concomitant]
     Active Substance: GOLD
     Indication: Product used for unknown indication
     Dosage: UNK
     Route: 065
  32. CIMZIA [Concomitant]
     Active Substance: CERTOLIZUMAB PEGOL
     Indication: Rheumatoid arthritis
     Dosage: UNK
     Route: 058
  33. ARAVA [Concomitant]
     Active Substance: LEFLUNOMIDE
     Indication: Product used for unknown indication
     Dosage: UNK
     Route: 065
  34. ARAVA [Concomitant]
     Active Substance: LEFLUNOMIDE
     Route: 048
  35. ARAVA [Concomitant]
     Active Substance: LEFLUNOMIDE
     Route: 065
  36. ENBREL [Concomitant]
     Active Substance: ETANERCEPT
     Indication: Rheumatoid arthritis
     Dosage: 50 MILLIGRAM
     Route: 058
  37. ENBREL [Concomitant]
     Active Substance: ETANERCEPT
     Route: 058
  38. ENBREL [Concomitant]
     Active Substance: ETANERCEPT
     Route: 065
  39. PREDNISONE [Concomitant]
     Active Substance: PREDNISONE
     Indication: Rheumatoid arthritis
     Dosage: 1 EVERY 24 HOURS
     Route: 048
  40. PREDNISONE [Concomitant]
     Active Substance: PREDNISONE
     Route: 048
  41. ACTEMRA [Concomitant]
     Active Substance: TOCILIZUMAB
     Indication: Rheumatoid arthritis
     Dosage: 8 MILLIGRAM/KILOGRAM, 2 YEARS
     Route: 042
  42. ACTEMRA [Concomitant]
     Active Substance: TOCILIZUMAB
     Dosage: 8 MILLIGRAM/KILOGRAM, 2 YEARS
     Route: 042
  43. ACTEMRA [Concomitant]
     Active Substance: TOCILIZUMAB
     Route: 065
  44. ACTEMRA [Concomitant]
     Active Substance: TOCILIZUMAB
     Route: 058
  45. ACETAMINOPHEN [Concomitant]
     Active Substance: ACETAMINOPHEN
     Indication: Product used for unknown indication
     Route: 065
  46. ALENDRONATE SODIUM [Concomitant]
     Active Substance: ALENDRONATE SODIUM
     Indication: Product used for unknown indication
     Route: 065
  47. LEFLUNOMIDE [Concomitant]
     Active Substance: LEFLUNOMIDE
     Indication: Rheumatoid arthritis
     Route: 048
  48. LEFLUNOMIDE [Concomitant]
     Active Substance: LEFLUNOMIDE
     Route: 065
  49. LEFLUNOMIDE [Concomitant]
     Active Substance: LEFLUNOMIDE
     Route: 065
  50. TRAMADOL [Concomitant]
     Active Substance: TRAMADOL
     Indication: Product used for unknown indication
     Route: 065
  51. APREMILAST [Concomitant]
     Active Substance: APREMILAST
     Indication: Rheumatoid arthritis
     Route: 065
  52. AZATHIOPRINE [Concomitant]
     Active Substance: AZATHIOPRINE
     Indication: Product used for unknown indication
     Route: 065
  53. CERTOLIZUMAB PEGOL [Concomitant]
     Active Substance: CERTOLIZUMAB PEGOL
     Indication: Product used for unknown indication
     Route: 058
  54. CETIRIZINE [Concomitant]
     Active Substance: CETIRIZINE HYDROCHLORIDE
     Indication: Product used for unknown indication
     Route: 065
  55. CORTISONE ACETATE [Concomitant]
     Active Substance: CORTISONE ACETATE
     Indication: Product used for unknown indication
     Route: 065
  56. COSENTYX [Concomitant]
     Active Substance: SECUKINUMAB
     Indication: Product used for unknown indication
     Route: 065
  57. DESOXIMETASONE [Concomitant]
     Active Substance: DESOXIMETASONE
     Indication: Rheumatoid arthritis
     Route: 058
  58. DESOXIMETASONE [Concomitant]
     Active Substance: DESOXIMETASONE
     Route: 048
  59. DESOXIMETASONE [Concomitant]
     Active Substance: DESOXIMETASONE
     Route: 065
  60. DICLOFENAC SODIUM [Concomitant]
     Active Substance: DICLOFENAC SODIUM
     Indication: Product used for unknown indication
     Route: 065
  61. ERELZI [Concomitant]
     Active Substance: ETANERCEPT-SZZS
     Indication: Rheumatoid arthritis
     Route: 065
  62. FLUMETHASONE PIVALATE [Concomitant]
     Active Substance: FLUMETHASONE PIVALATE
     Indication: Product used for unknown indication
     Route: 065
  63. FOLIC ACID [Concomitant]
     Active Substance: FOLIC ACID
     Indication: Product used for unknown indication
     Route: 065
  64. FOSAMAX [Concomitant]
     Active Substance: ALENDRONATE SODIUM
     Indication: Product used for unknown indication
     Route: 065
  65. GOLD SODIUM THIOMALATE [Concomitant]
     Active Substance: GOLD SODIUM THIOMALATE
     Indication: Product used for unknown indication
  66. HYDROCORTISONE ACETATE [Concomitant]
     Active Substance: HYDROCORTISONE ACETATE
     Indication: Product used for unknown indication
     Route: 065
  67. HYDROXYCHLOROQUINE [Concomitant]
     Active Substance: HYDROXYCHLOROQUINE
     Indication: Rheumatoid arthritis
     Route: 065
  68. HYDROXYCHLOROQUINE [Concomitant]
     Active Substance: HYDROXYCHLOROQUINE
     Route: 065
  69. HYDROXYCHLOROQUINE [Concomitant]
     Active Substance: HYDROXYCHLOROQUINE
     Route: 048
  70. INFLIXIMAB [Concomitant]
     Active Substance: INFLIXIMAB
     Indication: Rheumatoid arthritis
     Route: 042
  71. KEVZARA [Concomitant]
     Active Substance: SARILUMAB
     Indication: Product used for unknown indication
     Route: 065
  72. METHYLPREDNISOLONE [Concomitant]
     Active Substance: METHYLPREDNISOLONE
     Indication: Product used for unknown indication
     Route: 065
  73. MINOCIN [Concomitant]
     Active Substance: MINOCYCLINE HYDROCHLORIDE
     Indication: Rheumatoid arthritis
     Route: 065
  74. MINOCYCLINE HYDROCHLORIDE [Concomitant]
     Active Substance: MINOCYCLINE HYDROCHLORIDE
     Indication: Product used for unknown indication
     Route: 065
  75. MYOCHRYSINE [Concomitant]
     Active Substance: GOLD SODIUM THIOMALATE
     Indication: Rheumatoid arthritis
     Dosage: SOLUTION INTRAMUSCULAR
     Route: 041
  76. NAPROXEN [Concomitant]
     Active Substance: NAPROXEN
     Indication: Product used for unknown indication
     Route: 065
  77. PHTHALYLSULFATHIAZOLE [Concomitant]
     Active Substance: PHTHALYLSULFATHIAZOLE
     Indication: Product used for unknown indication
     Route: 058
  78. PSEUDOEPHEDRINE HYDROCHLORIDE [Concomitant]
     Active Substance: PSEUDOEPHEDRINE HYDROCHLORIDE
     Indication: Product used for unknown indication
     Route: 065
  79. SALAZOPYRINE [Concomitant]
     Active Substance: SULFASALAZINE
     Indication: Rheumatoid arthritis
     Route: 065
  80. SIRUKUMAB [Concomitant]
     Active Substance: SIRUKUMAB
     Indication: Product used for unknown indication
     Route: 065
  81. GOLD SODIUM THIOMALATE [Concomitant]
     Active Substance: GOLD SODIUM THIOMALATE
     Indication: Product used for unknown indication
     Route: 048
  82. STELARA [Concomitant]
     Active Substance: USTEKINUMAB
     Indication: Rheumatoid arthritis
     Route: 058
  83. TOCILIZUMAB [Concomitant]
     Active Substance: TOCILIZUMAB
     Indication: Product used for unknown indication
     Route: 058
  84. TOCILIZUMAB [Concomitant]
     Active Substance: TOCILIZUMAB
     Route: 042
  85. TOCILIZUMAB [Concomitant]
     Active Substance: TOCILIZUMAB
     Route: 065

REACTIONS (71)
  - Abdominal discomfort [Not Recovered/Not Resolved]
  - Arthralgia [Not Recovered/Not Resolved]
  - Coeliac disease [Not Recovered/Not Resolved]
  - Condition aggravated [Not Recovered/Not Resolved]
  - Drug ineffective [Not Recovered/Not Resolved]
  - Fatigue [Not Recovered/Not Resolved]
  - Grip strength decreased [Not Recovered/Not Resolved]
  - Headache [Not Recovered/Not Resolved]
  - Hepatic enzyme increased [Not Recovered/Not Resolved]
  - Injection site reaction [Not Recovered/Not Resolved]
  - Joint swelling [Not Recovered/Not Resolved]
  - Loss of personal independence in daily activities [Not Recovered/Not Resolved]
  - Musculoskeletal stiffness [Not Recovered/Not Resolved]
  - Nail disorder [Not Recovered/Not Resolved]
  - Onychomycosis [Not Recovered/Not Resolved]
  - Rheumatoid arthritis [Not Recovered/Not Resolved]
  - Treatment failure [Not Recovered/Not Resolved]
  - Abdominal distension [Not Recovered/Not Resolved]
  - Alopecia [Not Recovered/Not Resolved]
  - Anti-cyclic citrullinated peptide antibody positive [Not Recovered/Not Resolved]
  - Arthropathy [Not Recovered/Not Resolved]
  - Back injury [Not Recovered/Not Resolved]
  - Blood cholesterol increased [Not Recovered/Not Resolved]
  - C-reactive protein abnormal [Not Recovered/Not Resolved]
  - C-reactive protein increased [Not Recovered/Not Resolved]
  - Confusional state [Not Recovered/Not Resolved]
  - Drug hypersensitivity [Not Recovered/Not Resolved]
  - Drug intolerance [Not Recovered/Not Resolved]
  - Drug-induced liver injury [Not Recovered/Not Resolved]
  - Dyspepsia [Not Recovered/Not Resolved]
  - Fall [Not Recovered/Not Resolved]
  - Finger deformity [Not Recovered/Not Resolved]
  - Gait inability [Not Recovered/Not Resolved]
  - Gastric disorder [Not Recovered/Not Resolved]
  - General physical health deterioration [Not Recovered/Not Resolved]
  - Glossodynia [Not Recovered/Not Resolved]
  - Hepatitis [Not Recovered/Not Resolved]
  - Hypersensitivity [Not Recovered/Not Resolved]
  - Hypertension [Not Recovered/Not Resolved]
  - Inflammation [Not Recovered/Not Resolved]
  - Injury [Not Recovered/Not Resolved]
  - Insomnia [Not Recovered/Not Resolved]
  - Liver function test increased [Not Recovered/Not Resolved]
  - Malaise [Not Recovered/Not Resolved]
  - Mobility decreased [Not Recovered/Not Resolved]
  - Muscular weakness [Not Recovered/Not Resolved]
  - Nausea [Not Recovered/Not Resolved]
  - Neck pain [Not Recovered/Not Resolved]
  - Off label use [Unknown]
  - Onychomadesis [Not Recovered/Not Resolved]
  - Pain [Not Recovered/Not Resolved]
  - Pain in extremity [Not Recovered/Not Resolved]
  - Pemphigus [Not Recovered/Not Resolved]
  - Pneumonia [Not Recovered/Not Resolved]
  - Psoriatic arthropathy [Not Recovered/Not Resolved]
  - Rash [Not Recovered/Not Resolved]
  - Rheumatic fever [Not Recovered/Not Resolved]
  - Sleep disorder [Not Recovered/Not Resolved]
  - Swelling [Not Recovered/Not Resolved]
  - Synovitis [Not Recovered/Not Resolved]
  - Systemic lupus erythematosus [Not Recovered/Not Resolved]
  - Therapeutic product effect decreased [Not Recovered/Not Resolved]
  - Therapeutic product effect incomplete [Not Recovered/Not Resolved]
  - Product label confusion [Not Recovered/Not Resolved]
  - Type 2 diabetes mellitus [Not Recovered/Not Resolved]
  - Vomiting [Not Recovered/Not Resolved]
  - Wound [Not Recovered/Not Resolved]
  - Adverse event [Not Recovered/Not Resolved]
  - Hand deformity [Not Recovered/Not Resolved]
  - Infusion related reaction [Not Recovered/Not Resolved]
  - Pericarditis [Not Recovered/Not Resolved]
